FAERS Safety Report 17241508 (Version 1)
Quarter: 2020Q1

REPORT INFORMATION
  Report Type: Spontaneous
  Country: CN (occurrence: CN)
  Receive Date: 20200107
  Receipt Date: 20200107
  Transmission Date: 20200409
  Serious: Yes (Other)
  Sender: FDA-Public Use
  Company Number: CN-ROCHE-2379788

PATIENT
  Age: 38 Year
  Sex: Female

DRUGS (17)
  1. HERCEPTIN [Suspect]
     Active Substance: TRASTUZUMAB
     Indication: INVASIVE BREAST CARCINOMA
     Route: 065
     Dates: start: 20180824, end: 2018
  2. PYROTINIB [Concomitant]
     Active Substance: PYROTINIB
     Indication: INVASIVE BREAST CARCINOMA
     Route: 048
     Dates: start: 20180930
  3. PYROTINIB [Concomitant]
     Active Substance: PYROTINIB
     Route: 048
     Dates: start: 2019, end: 2019
  4. HERCEPTIN [Suspect]
     Active Substance: TRASTUZUMAB
     Route: 065
     Dates: start: 2019, end: 2019
  5. XELODA [Suspect]
     Active Substance: CAPECITABINE
     Dosage: THE DOSE REDUCED 20% THAN BEFORE
     Route: 048
     Dates: start: 20180914, end: 201809
  6. DOCETAXEL. [Suspect]
     Active Substance: DOCETAXEL
     Indication: INVASIVE BREAST CARCINOMA
     Route: 065
     Dates: start: 20180824, end: 2018
  7. ZOLEDRONIC ACID [Suspect]
     Active Substance: ZOLEDRONIC ACID
     Indication: INVASIVE BREAST CARCINOMA
     Route: 065
     Dates: start: 20180824, end: 2018
  8. XELODA [Suspect]
     Active Substance: CAPECITABINE
     Indication: INVASIVE BREAST CARCINOMA
     Route: 048
     Dates: start: 20180824, end: 2018
  9. GEMCITABINE. [Concomitant]
     Active Substance: GEMCITABINE
     Indication: INVASIVE BREAST CARCINOMA
     Route: 065
     Dates: start: 2019, end: 2019
  10. PACLITAXEL. [Concomitant]
     Active Substance: PACLITAXEL
     Indication: INVASIVE BREAST CARCINOMA
     Route: 065
     Dates: start: 20190101
  11. HERCEPTIN [Suspect]
     Active Substance: TRASTUZUMAB
     Route: 065
     Dates: start: 20180914, end: 201809
  12. HERCEPTIN [Suspect]
     Active Substance: TRASTUZUMAB
     Route: 065
     Dates: start: 20190101
  13. ZOLEDRONIC ACID [Suspect]
     Active Substance: ZOLEDRONIC ACID
     Dosage: THE DOSE REDUCED 20% THAN BEFORE
     Route: 065
     Dates: start: 20180914, end: 201809
  14. LAPATINIB [Concomitant]
     Active Substance: LAPATINIB
     Indication: INVASIVE BREAST CARCINOMA
     Route: 065
     Dates: start: 2019
  15. BEVACIZUMAB. [Suspect]
     Active Substance: BEVACIZUMAB
     Indication: INVASIVE BREAST CARCINOMA
     Route: 065
     Dates: start: 20190101
  16. DOCETAXEL. [Suspect]
     Active Substance: DOCETAXEL
     Dosage: THE DOSE REDUCED 20% THAN BEFORE
     Route: 065
     Dates: start: 20180914, end: 201809
  17. VINORELBINE [Concomitant]
     Active Substance: VINORELBINE TARTRATE
     Indication: INVASIVE BREAST CARCINOMA
     Route: 048
     Dates: start: 20180930

REACTIONS (5)
  - Agranulocytosis [Unknown]
  - Resorption bone increased [Unknown]
  - Pyrexia [Unknown]
  - Off label use [Unknown]
  - Intentional product use issue [Unknown]
